FAERS Safety Report 15150511 (Version 1)
Quarter: 2018Q3

REPORT INFORMATION
  Report Type: Spontaneous
  Country: CZ (occurrence: CZ)
  Receive Date: 20180716
  Receipt Date: 20180716
  Transmission Date: 20181010
  Serious: Yes (Hospitalization, Other)
  Sender: FDA-Public Use
  Company Number: CZ-MYLANLABS-2018M1052194

PATIENT
  Age: 42 Year
  Sex: Male

DRUGS (14)
  1. NALOXONE [Concomitant]
     Active Substance: NALOXONE
     Indication: COMA
     Dosage: 400 MG, UNK
     Route: 042
  2. BACLOFEN. [Suspect]
     Active Substance: BACLOFEN
     Indication: SPINAL PAIN
     Dosage: UNK
     Route: 048
  3. BACLOFEN. [Suspect]
     Active Substance: BACLOFEN
     Indication: NECK PAIN
  4. CLONAZEPAM MYLAN [Suspect]
     Active Substance: CLONAZEPAM
     Indication: SPINAL PAIN
  5. BACLOFEN. [Suspect]
     Active Substance: BACLOFEN
     Indication: MUSCULOSKELETAL PAIN
     Dosage: UNK
     Route: 048
  6. CLONAZEPAM MYLAN [Suspect]
     Active Substance: CLONAZEPAM
     Indication: MUSCULOSKELETAL PAIN
     Dosage: 2 MG, BID
     Route: 048
  7. MIDAZOLAM [Concomitant]
     Active Substance: MIDAZOLAM HYDROCHLORIDE
     Indication: ALTERED STATE OF CONSCIOUSNESS
  8. ATROPINE. [Concomitant]
     Active Substance: ATROPINE
     Indication: COMA
     Dosage: 0.5 MG, UNK
     Route: 042
  9. DIAZEPAM. [Concomitant]
     Active Substance: DIAZEPAM
     Indication: ALTERED STATE OF CONSCIOUSNESS
     Dosage: 10 MG, UNK
     Route: 042
  10. DIAZEPAM. [Concomitant]
     Active Substance: DIAZEPAM
     Indication: SEIZURE
  11. CLONAZEPAM MYLAN [Suspect]
     Active Substance: CLONAZEPAM
     Indication: NECK PAIN
  12. CLONAZEPAM MYLAN [Suspect]
     Active Substance: CLONAZEPAM
     Indication: EPILEPSY
  13. ANEXATE [Concomitant]
     Active Substance: FLUMAZENIL
     Indication: PRODUCT USED FOR UNKNOWN INDICATION
     Dosage: 0.5 MG, UNK
     Route: 042
  14. MIDAZOLAM [Concomitant]
     Active Substance: MIDAZOLAM HYDROCHLORIDE
     Indication: SEIZURE
     Dosage: 5 MG, UNK
     Route: 042

REACTIONS (9)
  - Heart rate decreased [Unknown]
  - Somnolence [Unknown]
  - Blood pressure increased [Unknown]
  - Overdose [Unknown]
  - Altered state of consciousness [Unknown]
  - Headache [Unknown]
  - Coma [Recovered/Resolved]
  - Seizure [Unknown]
  - Dysarthria [Unknown]
